FAERS Safety Report 8630960 (Version 2)
Quarter: 2012Q4

REPORT INFORMATION
  Report Type: 
  Country: FR (occurrence: FR)
  Receive Date: 20120622
  Receipt Date: 20121210
  Transmission Date: 20130627
  Serious: Yes (Hospitalization, Disabling)
  Sender: FDA-Public Use
  Company Number: PHHY2012FR052940

PATIENT
  Age: 32 Year
  Sex: Female

DRUGS (1)
  1. LEELOO [Suspect]
     Indication: CONTRACEPTION
     Dosage: 1 DF daily
     Route: 048
     Dates: start: 201204, end: 201204

REACTIONS (3)
  - Optic neuropathy [Not Recovered/Not Resolved]
  - Scotoma [Not Recovered/Not Resolved]
  - Vertigo [Not Recovered/Not Resolved]
